FAERS Safety Report 23097768 (Version 1)
Quarter: 2023Q4

REPORT INFORMATION
  Report Type: Spontaneous
  Country: US (occurrence: None)
  Receive Date: 20231019
  Receipt Date: 20231019
  Transmission Date: 20240110
  Serious: No
  Sender: FDA-Public Use
  Company Number: None

PATIENT
  Sex: Female

DRUGS (2)
  1. ZEJULA [Suspect]
     Active Substance: NIRAPARIB
     Indication: Ovarian cancer
     Dosage: FREQUENCY : EVERY OTHER DAY;?
     Route: 048
     Dates: start: 202202
  2. ZEJULA [Suspect]
     Active Substance: NIRAPARIB
     Dosage: FREQUENCY : EVERY OTHER DAY;?
     Route: 048
     Dates: start: 202202

REACTIONS (1)
  - Drug ineffective [None]
